FAERS Safety Report 5510113-9 (Version None)
Quarter: 2007Q4

REPORT INFORMATION
  Report Type: 
  Country: None (occurrence: None)
  Receive Date: 20071108
  Receipt Date: 20071102
  Transmission Date: 20080405
  Serious: Yes (Hospitalization, Other)
  Sender: FDA-Public Use
  Company Number: US-ASTRAZENECA-2007UW25550

PATIENT
  Age: 94 Year
  Sex: Male
  Weight: 61.1 kg

DRUGS (13)
  1. SEROQUEL [Suspect]
     Indication: DEMENTIA ALZHEIMER'S TYPE
     Route: 048
     Dates: start: 20071002
  2. SEROQUEL [Suspect]
     Dosage: 25-150 MG PO HS
     Route: 048
     Dates: start: 20070730, end: 20071001
  3. DONEPEZIL HCL [Concomitant]
  4. HYDROCHLOROTHIAZIDE [Concomitant]
  5. LISINOPRIL [Concomitant]
  6. OMEPRAZOLE [Concomitant]
  7. SERTRALINE [Concomitant]
  8. TIMOLOL MALEATE [Concomitant]
  9. TRAVOPROST [Concomitant]
  10. TRAZODONE HCL [Concomitant]
  11. ASPIRIN [Concomitant]
  12. DOCUSATE SODIUM [Concomitant]
  13. VERAPAMIL [Concomitant]

REACTIONS (3)
  - DEHYDRATION [None]
  - PNEUMONIA ASPIRATION [None]
  - RENAL FAILURE ACUTE [None]
